FAERS Safety Report 25240062 (Version 1)
Quarter: 2025Q2

REPORT INFORMATION
  Report Type: Other
  Country: GB (occurrence: GB)
  Receive Date: 20250425
  Receipt Date: 20250425
  Transmission Date: 20250717
  Serious: Yes (Other)
  Sender: GLENMARK
  Company Number: None

PATIENT
  Age: 6 Year
  Sex: Female
  Weight: 18 kg

DRUGS (3)
  1. MONTELUKAST SODIUM [Suspect]
     Active Substance: MONTELUKAST SODIUM
     Indication: Asthma
     Dosage: 5 MILLIGRAM, OD (AT NIGHT) STOP DATE REPORTED AS: 24-MAR-2025
     Route: 065
     Dates: start: 20241220, end: 202504
  2. ALBUTEROL [Concomitant]
     Active Substance: ALBUTEROL
     Indication: Asthma
     Route: 065
     Dates: start: 20191001
  3. BECLOMETHASONE DIPROPIONATE [Concomitant]
     Active Substance: BECLOMETHASONE DIPROPIONATE
     Indication: Asthma
     Route: 065
     Dates: start: 20191001

REACTIONS (4)
  - Mood altered [Recovered/Resolved]
  - Psychomotor hyperactivity [Recovered/Resolved]
  - Anxiety [Recovered/Resolved]
  - Depressed mood [Recovered/Resolved]

NARRATIVE: CASE EVENT DATE: 20250101
